FAERS Safety Report 7049215-7 (Version None)
Quarter: 2010Q4

REPORT INFORMATION
  Report Type: 
  Country: None (occurrence: None)
  Receive Date: 20101018
  Receipt Date: 20101007
  Transmission Date: 20110411
  Serious: Yes (Hospitalization, Other)
  Sender: FDA-Public Use
  Company Number: CH-BAXTER-2010BH025469

PATIENT
  Age: 43 Year
  Sex: Female

DRUGS (12)
  1. CYCLOPHOSPHAMIDE [Suspect]
     Indication: HODGKIN'S DISEASE
     Route: 051
     Dates: start: 20081101, end: 20090301
  2. BLEOMYCIN GENERIC [Suspect]
     Indication: HODGKIN'S DISEASE
     Route: 051
     Dates: start: 20081101, end: 20090301
  3. ETOPOSIDE [Suspect]
     Indication: HODGKIN'S DISEASE
     Route: 051
     Dates: start: 20081101, end: 20090301
  4. DOXORUBICIN HCL [Suspect]
     Indication: HODGKIN'S DISEASE
     Route: 051
     Dates: start: 20081101, end: 20090301
  5. VINCRISTINE SULFATE [Suspect]
     Indication: HODGKIN'S DISEASE
     Route: 051
     Dates: start: 20081101, end: 20090301
  6. METHYLPREDNISOLONE [Suspect]
     Indication: HODGKIN'S DISEASE
     Route: 048
     Dates: start: 20081101, end: 20090301
  7. PIPERACILLIN AND TAZOBACTAM [Concomitant]
     Indication: PRODUCT USED FOR UNKNOWN INDICATION
     Route: 065
  8. PANTOPRAZOLE SODIUM [Concomitant]
     Indication: PRODUCT USED FOR UNKNOWN INDICATION
     Route: 065
  9. WELLVONE [Concomitant]
     Indication: PRODUCT USED FOR UNKNOWN INDICATION
     Route: 065
  10. DIFLUCAN [Concomitant]
     Indication: PRODUCT USED FOR UNKNOWN INDICATION
     Route: 065
  11. TRANSIPEG                               /SCH/ [Concomitant]
     Indication: PRODUCT USED FOR UNKNOWN INDICATION
     Route: 065
  12. PROCTO-GLYVENOL [Concomitant]
     Indication: PRODUCT USED FOR UNKNOWN INDICATION
     Route: 065

REACTIONS (15)
  - ABSCESS [None]
  - AGRANULOCYTOSIS [None]
  - AMENORRHOEA [None]
  - ANAEMIA [None]
  - ARTHRALGIA [None]
  - BONE DENSITY DECREASED [None]
  - BONE MARROW FAILURE [None]
  - ESCHERICHIA SEPSIS [None]
  - LIVER ABSCESS [None]
  - MYALGIA [None]
  - NAUSEA [None]
  - PANCYTOPENIA [None]
  - SEPSIS [None]
  - THROMBOCYTOPENIA [None]
  - VOMITING [None]
